FAERS Safety Report 9030109 (Version 1)
Quarter: 2013Q1

REPORT INFORMATION
  Report Type: Spontaneous
  Country: US (occurrence: US)
  Receive Date: 20130125
  Receipt Date: 20130125
  Transmission Date: 20140127
  Serious: No
  Sender: FDA-Public Use
  Company Number: US-BIOGENIDEC-2013BI005263

PATIENT
  Age: 30 Year
  Sex: Female

DRUGS (7)
  1. AVONEX [Suspect]
     Indication: MULTIPLE SCLEROSIS
     Route: 030
     Dates: start: 20000907, end: 20060727
  2. AVONEX [Suspect]
     Indication: MULTIPLE SCLEROSIS
     Route: 030
     Dates: start: 20061019, end: 20070123
  3. AVONEX [Suspect]
     Indication: MULTIPLE SCLEROSIS
     Route: 030
     Dates: start: 20070412, end: 20070917
  4. AVONEX [Suspect]
     Indication: MULTIPLE SCLEROSIS
     Route: 030
     Dates: start: 20080116
  5. TYLENOL [Concomitant]
     Indication: PREMEDICATION
  6. IBUPROFEN [Concomitant]
     Indication: PREMEDICATION
  7. NAPROSYN [Concomitant]
     Indication: PREMEDICATION

REACTIONS (3)
  - Breast discomfort [Recovered/Resolved]
  - Breast pain [Recovered/Resolved]
  - Influenza like illness [Recovered/Resolved]
